FAERS Safety Report 9506228 (Version 1)
Quarter: 2013Q1

REPORT INFORMATION
  Report Type: Spontaneous
  Country: US (occurrence: None)
  Receive Date: 20130305
  Receipt Date: 20130305
  Transmission Date: 20140127
  Serious: Yes (Hospitalization)
  Sender: FDA-Public Use
  Company Number: 163-21880-11023183

PATIENT
  Age: 72 Year
  Sex: Male

DRUGS (5)
  1. REVLIMID (LENALIDOMIDE) (CAPSULES) [Suspect]
     Indication: PLASMA CELL MYELOMA
     Route: 048
     Dates: start: 201011, end: 20101122
  2. VELCADE [Concomitant]
  3. ZOMETA (ZOLEDRONIC ACID) (UNKNOWN) [Concomitant]
  4. PERCOCET (OXYCOCET) (UNKNOWN) [Concomitant]
  5. MEGACE ES (MEGESTROL ACETATE) (UNKNOWN) [Concomitant]

REACTIONS (4)
  - Rash maculo-papular [None]
  - Renal failure acute [None]
  - Pyrexia [None]
  - Dyspnoea [None]
